FAERS Safety Report 5889723-5 (Version None)
Quarter: 2008Q3

REPORT INFORMATION
  Report Type: 
  Country: None (occurrence: None)
  Receive Date: 20080919
  Receipt Date: 20080917
  Transmission Date: 20090109
  Serious: Yes (Life-Threatening)
  Sender: FDA-Public Use
  Company Number: CN-ASTRAZENECA-2008AP07296

PATIENT
  Age: 45 Year
  Sex: Male

DRUGS (2)
  1. LIDOCAINE [Suspect]
     Indication: ANALGESIA
  2. PREDNISOLONE [Suspect]
     Indication: PERIARTHRITIS

REACTIONS (1)
  - ANAPHYLACTIC SHOCK [None]
